FAERS Safety Report 9114074 (Version 1)
Quarter: 2013Q1

REPORT INFORMATION
  Report Type: Spontaneous
  Country: US (occurrence: US)
  Receive Date: 20130129
  Receipt Date: 20130129
  Transmission Date: 20140127
  Serious: No
  Sender: FDA-Public Use
  Company Number: US-ABBOTT-12P-163-0943742-00

PATIENT
  Sex: Female
  Weight: 65.38 kg

DRUGS (5)
  1. HUMIRA 40 MG/0.8 ML PEN [Suspect]
     Indication: CROHN^S DISEASE
     Dates: start: 2008, end: 2010
  2. PROZAC [Concomitant]
     Indication: DEPRESSION
  3. DUREZOL [Concomitant]
     Indication: EYE INFLAMMATION
     Route: 047
  4. PREDNISONE [Concomitant]
     Indication: CROHN^S DISEASE
  5. VIVELLE [Concomitant]
     Indication: OESTROGEN THERAPY

REACTIONS (1)
  - Diarrhoea [Recovered/Resolved]
